FAERS Safety Report 15844784 (Version 1)
Quarter: 2019Q1

REPORT INFORMATION
  Report Type: Spontaneous
  Country: US (occurrence: US)
  Receive Date: 20190118
  Receipt Date: 20190118
  Transmission Date: 20190417
  Serious: No
  Sender: FDA-Public Use
  Company Number: US-BAUSCH-BL-2019-001029

PATIENT
  Sex: Female

DRUGS (2)
  1. RETIN-A [Suspect]
     Active Substance: TRETINOIN
     Indication: SKIN WRINKLING
     Route: 061
     Dates: start: 201805
  2. RETIN-A [Suspect]
     Active Substance: TRETINOIN
     Indication: OFF LABEL USE

REACTIONS (1)
  - Drug ineffective for unapproved indication [Unknown]
